FAERS Safety Report 15892630 (Version 1)
Quarter: 2019Q1

REPORT INFORMATION
  Report Type: Spontaneous
  Country: FR (occurrence: FR)
  Receive Date: 20190130
  Receipt Date: 20190130
  Transmission Date: 20190417
  Serious: Yes (Life-Threatening)
  Sender: FDA-Public Use
  Company Number: FR-AMGEN-FRASP2019015177

PATIENT
  Age: 13 Year
  Sex: Male

DRUGS (2)
  1. ENBREL [Suspect]
     Active Substance: ETANERCEPT
     Indication: JUVENILE IDIOPATHIC ARTHRITIS
     Dosage: 32 MG,EVERY 7 DAYS
     Route: 058
     Dates: start: 201708, end: 201811
  2. HUMIRA [Suspect]
     Active Substance: ADALIMUMAB
     Indication: JUVENILE IDIOPATHIC ARTHRITIS
     Dosage: 30 MG, EVERY 15 DAYS
     Route: 058
     Dates: start: 2016, end: 201708

REACTIONS (1)
  - Hodgkin^s disease [Not Recovered/Not Resolved]

NARRATIVE: CASE EVENT DATE: 201811
